FAERS Safety Report 21003643 (Version 1)
Quarter: 2022Q2

REPORT INFORMATION
  Report Type: Spontaneous
  Country: BR (occurrence: BR)
  Receive Date: 20220624
  Receipt Date: 20220624
  Transmission Date: 20220720
  Serious: Yes (Other)
  Sender: FDA-Public Use
  Company Number: BR-drreddys-LIT/BRA/22/0151613

PATIENT
  Age: 41 Year
  Sex: Female

DRUGS (2)
  1. GEMCITABINE [Suspect]
     Active Substance: GEMCITABINE
     Indication: Adult T-cell lymphoma/leukaemia
     Dosage: GEMOX
  2. OXALIPLATIN [Suspect]
     Active Substance: OXALIPLATIN
     Indication: Adult T-cell lymphoma/leukaemia
     Dosage: GEMOX

REACTIONS (2)
  - Disease progression [Unknown]
  - Drug ineffective [Unknown]
